FAERS Safety Report 7660262-4 (Version None)
Quarter: 2011Q3

REPORT INFORMATION
  Report Type: 
  Country: None (occurrence: None)
  Receive Date: 20110803
  Receipt Date: 20110720
  Transmission Date: 20111222
  Serious: Yes (Hospitalization)
  Sender: FDA-Public Use
  Company Number: UTC-008745

PATIENT
  Age: 39 Year
  Sex: Female
  Weight: 59.4 kg

DRUGS (4)
  1. COUMADIN [Concomitant]
  2. REMODULIN [Suspect]
     Indication: PULMONARY ARTERIAL HYPERTENSION
     Dosage: 144 UG/KG (0.1 UG/KG, 1 IN 1 MIN), INTRAVENOUS
     Route: 042
     Dates: start: 20060116
  3. REVATIO [Concomitant]
  4. TRACLEER [Concomitant]

REACTIONS (1)
  - HAEMOPTYSIS [None]
